FAERS Safety Report 21268997 (Version 1)
Quarter: 2022Q3

REPORT INFORMATION
  Report Type: Spontaneous
  Country: AU (occurrence: AU)
  Receive Date: 20220830
  Receipt Date: 20220830
  Transmission Date: 20221026
  Serious: Yes (Other)
  Sender: FDA-Public Use
  Company Number: AU-BAXTER-2022BAX018242

PATIENT
  Sex: Female

DRUGS (17)
  1. DOXORUBICIN [Suspect]
     Active Substance: DOXORUBICIN
     Indication: Richter^s syndrome
     Dosage: UNK (RCHOP REGIMEN)
     Route: 065
  2. DOXORUBICIN [Suspect]
     Active Substance: DOXORUBICIN
     Indication: Chronic lymphocytic leukaemia
  3. CYCLOPHOSPHAMIDE [Suspect]
     Active Substance: CYCLOPHOSPHAMIDE
     Indication: Richter^s syndrome
     Dosage: UNK (RCHOP REGIMEN)
     Route: 065
  4. CYCLOPHOSPHAMIDE [Suspect]
     Active Substance: CYCLOPHOSPHAMIDE
     Indication: Chronic lymphocytic leukaemia
  5. RITUXIMAB [Suspect]
     Active Substance: RITUXIMAB
     Indication: Richter^s syndrome
     Dosage: UNK (RCHOP REGIMEN, 1 CYCLE)
     Route: 065
  6. RITUXIMAB [Suspect]
     Active Substance: RITUXIMAB
     Indication: Chronic lymphocytic leukaemia
     Dosage: UNK (3 MONTHS)
     Route: 065
  7. RITUXIMAB [Suspect]
     Active Substance: RITUXIMAB
     Dosage: UNK (RHDAC, 1 CYCLE)
     Route: 065
  8. VINCRISTINE [Suspect]
     Active Substance: VINCRISTINE
     Indication: Richter^s syndrome
     Dosage: UNK (RCHOP REGIMEN)
     Route: 065
  9. VINCRISTINE [Suspect]
     Active Substance: VINCRISTINE
     Indication: Chronic lymphocytic leukaemia
  10. PREDNISONE [Suspect]
     Active Substance: PREDNISONE
     Indication: Richter^s syndrome
     Dosage: UNK (RCHOP REGIMEN)
     Route: 065
  11. PREDNISONE [Suspect]
     Active Substance: PREDNISONE
     Indication: Chronic lymphocytic leukaemia
  12. IBRUTINIB [Suspect]
     Active Substance: IBRUTINIB
     Indication: Richter^s syndrome
     Dosage: UNK (X 10 MONTHS)
     Route: 065
  13. IBRUTINIB [Suspect]
     Active Substance: IBRUTINIB
     Indication: Chronic lymphocytic leukaemia
     Dosage: UNK (RHDAC; 1 CYCLE)
     Route: 065
  14. VENETOCLAX [Suspect]
     Active Substance: VENETOCLAX
     Indication: Richter^s syndrome
     Dosage: UNK (3 MONTHS)
     Route: 065
  15. VENETOCLAX [Suspect]
     Active Substance: VENETOCLAX
     Indication: Chronic lymphocytic leukaemia
     Dosage: UNK (RCHOP; 1 CYCLE)
     Route: 065
  16. CYTARABINE [Suspect]
     Active Substance: CYTARABINE
     Indication: Richter^s syndrome
     Dosage: UNK (RHDAC)
     Route: 065
  17. CYTARABINE [Suspect]
     Active Substance: CYTARABINE
     Indication: Chronic lymphocytic leukaemia

REACTIONS (4)
  - Disease progression [Unknown]
  - Bone pain [Unknown]
  - Hypercalcaemia [Unknown]
  - Pain [Unknown]
